FAERS Safety Report 5742172-2 (Version None)
Quarter: 2008Q2

REPORT INFORMATION
  Report Type: 
  Country: None (occurrence: None)
  Receive Date: 20080514
  Receipt Date: 20080514
  Transmission Date: 20081010
  Serious: Yes (Disabling)
  Sender: FDA-Public Use
  Company Number: None

PATIENT
  Sex: Male

DRUGS (1)
  1. DIGITEK 0.25 MG ACTAVIS [Suspect]
     Dosage: 0.25 MG DAILY PO
     Route: 048
     Dates: start: 20071218, end: 20080509

REACTIONS (7)
  - DIARRHOEA [None]
  - HEART RATE DECREASED [None]
  - HYPOTENSION [None]
  - NAUSEA [None]
  - PHARMACEUTICAL PRODUCT COMPLAINT [None]
  - VISUAL DISTURBANCE [None]
  - VOMITING [None]
